FAERS Safety Report 8728964 (Version 2)
Quarter: 2013Q3

REPORT INFORMATION
  Report Type: Spontaneous
  Country: US (occurrence: US)
  Receive Date: 20120817
  Receipt Date: 20130823
  Transmission Date: 20140515
  Serious: Yes (Other)
  Sender: FDA-Public Use
  Company Number: US-BRISTOL-MYERS SQUIBB COMPANY-16275745

PATIENT
  Age: 47 Year
  Sex: Female

DRUGS (13)
  1. SPRYCEL [Suspect]
     Indication: CHRONIC MYELOID LEUKAEMIA
     Route: 048
     Dates: start: 20110824
  2. LECITHIN [Concomitant]
  3. CENTRUM [Concomitant]
  4. IRON [Concomitant]
  5. XOPENEX [Concomitant]
  6. FLEXERIL [Concomitant]
  7. AMBIEN [Concomitant]
  8. CALCIUM [Concomitant]
  9. TYLENOL [Concomitant]
  10. MIRALAX [Concomitant]
  11. MAGNESIUM [Concomitant]
  12. ZINC [Concomitant]
  13. VITAMIN C [Concomitant]

REACTIONS (11)
  - Colitis [Unknown]
  - Constipation [Recovered/Resolved]
  - Abdominal pain [Unknown]
  - Painful defaecation [Unknown]
  - Rectal haemorrhage [Unknown]
  - Diarrhoea [Unknown]
  - Nausea [Not Recovered/Not Resolved]
  - Dizziness [Unknown]
  - Headache [Unknown]
  - Cough [Unknown]
  - Pyrexia [Unknown]
